FAERS Safety Report 8221265-4 (Version None)
Quarter: 2012Q1

REPORT INFORMATION
  Report Type: 
  Country: None (occurrence: None)
  Receive Date: 20120320
  Receipt Date: 20120313
  Transmission Date: 20120608
  Serious: Yes (Disabling)
  Sender: FDA-Public Use
  Company Number: PHHY2012FR023016

PATIENT
  Sex: Female

DRUGS (5)
  1. FEMARA [Suspect]
     Dosage: UNK
     Route: 048
     Dates: start: 20110401
  2. EPIRUBICIN [Suspect]
     Dosage: UNK
     Dates: start: 20101014, end: 20101125
  3. FLUOROURACIL [Suspect]
     Dosage: UNK
     Dates: start: 20101014, end: 20101125
  4. CYCLOPHOSPHAMIDE [Suspect]
     Dosage: UNK
     Dates: start: 20101014, end: 20101125
  5. TAXOTERE [Suspect]
     Dosage: UNK
     Dates: start: 20101216, end: 20110127

REACTIONS (4)
  - HAIR GROWTH ABNORMAL [None]
  - ALOPECIA [None]
  - HAIR DISORDER [None]
  - BLOOD IRON DECREASED [None]
